FAERS Safety Report 5354428-6 (Version None)
Quarter: 2007Q2

REPORT INFORMATION
  Report Type: 
  Country: None (occurrence: None)
  Receive Date: 20070612
  Receipt Date: 20070611
  Transmission Date: 20071010
  Serious: Yes (Hospitalization, Other)
  Sender: FDA-Public Use
  Company Number: FR-BRISTOL-MYERS SQUIBB COMPANY-13803671

PATIENT
  Age: 95 Year
  Sex: Male

DRUGS (8)
  1. COUMADIN [Suspect]
     Route: 048
     Dates: start: 20070305, end: 20070423
  2. DOLIPRANE [Interacting]
     Dates: end: 20070428
  3. PYOSTACINE [Interacting]
     Dates: start: 20070416, end: 20070422
  4. BURINEX [Concomitant]
  5. XATRAL [Concomitant]
  6. HEMIGOXINE NATIVELLE [Concomitant]
  7. CARBOSYLANE [Concomitant]
     Dates: start: 20070416, end: 20070423
  8. METFORMIN HCL [Concomitant]
     Dates: end: 20070423

REACTIONS (4)
  - COAGULOPATHY [None]
  - DRUG INTERACTION [None]
  - DRUG TOXICITY [None]
  - ERYSIPELAS [None]
